FAERS Safety Report 8226476-X (Version None)
Quarter: 2012Q1

REPORT INFORMATION
  Report Type: 
  Country: None (occurrence: None)
  Receive Date: 20120322
  Receipt Date: 20120312
  Transmission Date: 20120608
  Serious: Yes (Other)
  Sender: FDA-Public Use
  Company Number: DE-ASTRAZENECA-2012SE16018

PATIENT

DRUGS (5)
  1. METOPROLOL SUCCINATE [Concomitant]
  2. SIMVASTATIN [Concomitant]
  3. ASPIRIN [Concomitant]
     Indication: ANTIPLATELET THERAPY
  4. RAMIPRIL [Concomitant]
  5. BRILIQUE [Suspect]
     Route: 048

REACTIONS (4)
  - PERICARDITIS [None]
  - TACHYCARDIA [None]
  - DYSPNOEA [None]
  - C-REACTIVE PROTEIN INCREASED [None]
